FAERS Safety Report 7331287-3 (Version None)
Quarter: 2011Q1

REPORT INFORMATION
  Report Type: 
  Country: None (occurrence: None)
  Receive Date: 20110304
  Receipt Date: 20110223
  Transmission Date: 20110831
  Serious: Yes (Hospitalization)
  Sender: FDA-Public Use
  Company Number: US-JNJFOC-20100607534

PATIENT
  Sex: Male
  Weight: 82.1 kg

DRUGS (17)
  1. CARDURA [Concomitant]
  2. ANTIBIOTIC [Suspect]
     Indication: URINARY TRACT INFECTION
  3. LOVAZA [Concomitant]
  4. RESTASIS [Concomitant]
  5. FINASTERIDE [Concomitant]
  6. LYRICA [Concomitant]
  7. CYMBALTA [Suspect]
     Indication: ILL-DEFINED DISORDER
  8. SOLU-CORTEF [Concomitant]
     Indication: PREMEDICATION
  9. METHOTREXATE [Concomitant]
  10. REMICADE [Suspect]
     Route: 042
  11. MULTI-VITAMINS [Concomitant]
  12. ASCORBIC ACID [Concomitant]
  13. TOCOPHEROL CONCENTRATE CAP [Concomitant]
  14. HYZAAR [Concomitant]
     Dosage: 12.5 MG-50 MG PER DAY
  15. REMICADE [Suspect]
     Indication: RHEUMATOID ARTHRITIS
     Route: 042
  16. PIROXICAM [Concomitant]
  17. LOPID [Concomitant]

REACTIONS (4)
  - RESTRICTIVE PULMONARY DISEASE [None]
  - CORONARY ARTERY DISEASE [None]
  - PNEUMONIA [None]
  - ACUTE RESPIRATORY DISTRESS SYNDROME [None]
